FAERS Safety Report 4464938-1 (Version None)
Quarter: 2004Q4

REPORT INFORMATION
  Report Type: 
  Country: None (occurrence: None)
  Receive Date: 20041004
  Receipt Date: 20040317
  Transmission Date: 20050328
  Serious: No
  Sender: FDA-Public Use
  Company Number: 364944

PATIENT
  Age: 74 Year
  Sex: Male

DRUGS (4)
  1. COREG [Suspect]
     Dosage: 3.25MG PER DAY
     Route: 048
     Dates: end: 20040217
  2. COUMADIN [Concomitant]
  3. VASOTEC [Concomitant]
  4. DEMADEX [Concomitant]

REACTIONS (2)
  - OEDEMA PERIPHERAL [None]
  - PAIN IN EXTREMITY [None]
